FAERS Safety Report 5049829-X (Version None)
Quarter: 2006Q3

REPORT INFORMATION
  Report Type: 
  Country: None (occurrence: None)
  Receive Date: 20060706
  Receipt Date: 20060621
  Transmission Date: 20061208
  Serious: Yes (Hospitalization)
  Sender: FDA-Public Use
  Company Number: 2006S1004174

PATIENT
  Age: 71 Year
  Sex: Female
  Weight: 39.9165 kg

DRUGS (8)
  1. FENTANYL TRANSDERMAL SYSTEM [Suspect]
     Indication: NEUROPATHY PERIPHERAL
     Dosage: 50 UG/HR; Q3D; TRANS
     Dates: start: 20060425, end: 20060501
  2. METOPROLOL SUCCINATE [Concomitant]
  3. IRBESARTAN [Concomitant]
  4. LORATADINE [Concomitant]
  5. ALLOPURINOL [Concomitant]
  6. INSULIN GLARGINE [Concomitant]
  7. INSULIN HUMAN/INSULIN HUMAN INJECTION, ISOPHANE [Concomitant]
  8. GUAIFENESIN [Concomitant]

REACTIONS (8)
  - BLOOD GLUCOSE DECREASED [None]
  - CONFUSIONAL STATE [None]
  - CONSTIPATION [None]
  - CYSTITIS [None]
  - DRUG EFFECT INCREASED [None]
  - NAUSEA [None]
  - TREMOR [None]
  - VOMITING [None]
